FAERS Safety Report 17101807 (Version 1)
Quarter: 2019Q4

REPORT INFORMATION
  Report Type: Spontaneous
  Country: FR (occurrence: FR)
  Receive Date: 20191202
  Receipt Date: 20191202
  Transmission Date: 20200122
  Serious: Yes (Hospitalization)
  Sender: FDA-Public Use
  Company Number: FR-MYLANLABS-2019M1116981

PATIENT
  Age: 34 Year
  Sex: Male
  Weight: 83 kg

DRUGS (4)
  1. LAMALINE (ACETAMINOPHEN\CAFFEINE\OPIUM) [Suspect]
     Active Substance: ACETAMINOPHEN\CAFFEINE\OPIUM
     Indication: TOXICITY TO VARIOUS AGENTS
     Dosage: 10 DOSAGE FORM, TOTAL
     Route: 048
     Dates: start: 20171222, end: 20171222
  2. BIPROFENID [Suspect]
     Active Substance: KETOPROFEN
     Indication: TOXICITY TO VARIOUS AGENTS
     Dosage: 20 DOSAGE FORM, TOTAL
     Route: 048
     Dates: start: 20171222, end: 20171222
  3. VALIUM [Suspect]
     Active Substance: DIAZEPAM
     Indication: TOXICITY TO VARIOUS AGENTS
     Dosage: 10 DOSAGE FORM, QD
     Route: 048
     Dates: start: 20171222, end: 20171222
  4. TRAMADOL. [Suspect]
     Active Substance: TRAMADOL
     Indication: TOXICITY TO VARIOUS AGENTS
     Dosage: UNK,1 TOTAL
     Route: 048
     Dates: start: 20171222, end: 20171222

REACTIONS (8)
  - Coma [Recovered/Resolved]
  - Somnolence [Recovered/Resolved]
  - Acute kidney injury [Recovered/Resolved]
  - Loss of consciousness [Recovered/Resolved]
  - Anterograde amnesia [Recovered/Resolved]
  - Toxicity to various agents [Recovered/Resolved]
  - Disorientation [Recovered/Resolved]
  - Seizure [Recovered/Resolved]

NARRATIVE: CASE EVENT DATE: 20171222
